FAERS Safety Report 5054302-9 (Version None)
Quarter: 2006Q3

REPORT INFORMATION
  Report Type: 
  Country: None (occurrence: None)
  Receive Date: 20060713
  Receipt Date: 20060703
  Transmission Date: 20061208
  Serious: Yes (Life-Threatening, Hospitalization, Other)
  Sender: FDA-Public Use
  Company Number: 2003-05-1141

PATIENT
  Age: 40 Year
  Sex: Female
  Weight: 73.0291 kg

DRUGS (19)
  1. PEG-INTRON [Suspect]
     Indication: HEPATITIS C
     Dosage: SEE IMAGE
     Route: 058
     Dates: start: 20020819, end: 20030423
  2. PEG-INTRON [Suspect]
     Indication: HEPATITIS C
     Dosage: SEE IMAGE
     Route: 058
     Dates: start: 20051229
  3. REBETOL [Suspect]
     Indication: HEPATITIS C
     Dosage: SEE IMAGE
     Route: 048
     Dates: start: 20020819, end: 20030423
  4. REBETOL [Suspect]
     Indication: HEPATITIS C
     Dosage: SEE IMAGE
     Route: 048
     Dates: start: 20051229
  5. IMITREX [Concomitant]
  6. CELEXA [Concomitant]
  7. SEROQUEL (QUETIAPINE FUMURATE) [Concomitant]
  8. LITHOBID [Concomitant]
  9. CALCIUM GLUCONATE [Concomitant]
  10. BENADRYL [Concomitant]
  11. MAGNESIUM [Concomitant]
  12. VALIUM [Concomitant]
  13. ESTRADIOL [Concomitant]
  14. ASPIRIN [Concomitant]
  15. BUSPAR [Concomitant]
  16. FLEXERIL [Concomitant]
  17. PROPOXYPHENE HYDROCHLORIDE [Concomitant]
  18. FLUOXETINE HYDROCHLORIDE [Concomitant]
  19. SYNTHROID [Concomitant]

REACTIONS (4)
  - CARDIAC DISORDER [None]
  - CEREBROVASCULAR ACCIDENT [None]
  - TRANSIENT ISCHAEMIC ATTACK [None]
  - UPPER RESPIRATORY TRACT INFECTION [None]
